FAERS Safety Report 21266106 (Version 1)
Quarter: 2022Q3

REPORT INFORMATION
  Report Type: Spontaneous
  Country: US (occurrence: None)
  Receive Date: 20220826
  Receipt Date: 20220826
  Transmission Date: 20221027
  Serious: No
  Sender: FDA-Public Use
  Company Number: None

PATIENT
  Age: 79 Year
  Sex: Male

DRUGS (1)
  1. HUMIRA [Suspect]
     Active Substance: ADALIMUMAB
     Dosage: OTHER QUANTITY : 40MG/0.4ML;?
     Route: 058

REACTIONS (3)
  - COVID-19 [None]
  - Pancreatitis [None]
  - Therapy interrupted [None]

NARRATIVE: CASE EVENT DATE: 20220723
